FAERS Safety Report 8251406-4 (Version None)
Quarter: 2012Q2

REPORT INFORMATION
  Report Type: 
  Country: None (occurrence: None)
  Receive Date: 20120402
  Receipt Date: 20120322
  Transmission Date: 20120825
  Serious: Yes (Hospitalization)
  Sender: FDA-Public Use
  Company Number: JP-BRISTOL-MYERS SQUIBB COMPANY-16387342

PATIENT
  Age: 64 Year
  Sex: Male
  Weight: 54 kg

DRUGS (6)
  1. CREMIN [Suspect]
     Dosage: UNKNOWN-26DEC11 27DEC11-27DEC11(1DY)
     Route: 048
  2. LODOPIN [Suspect]
     Dosage: 50MG;27DC11-27DC;1D,28DC-28DC;1D,29DC-29DC;1D:125MG,30DC-09JAN12;25MG;11D;BID,10JAN-10JAN;1D;QD
     Route: 048
     Dates: start: 20111227, end: 20120125
  3. RISPERDAL [Concomitant]
     Dosage: FORMULATION:TAB
     Dates: start: 20120126
  4. DOGMATYL [Suspect]
     Dosage: UNK-28DEC11,29DC11-29DC(1D);375 MG/D,75MG;30DC-09JAN12;11D;BID,10JAN-10JAN;QD;1D,11JAN-23JAN;13D
     Route: 048
  5. HALCION [Concomitant]
     Dosage: TAB
  6. ABILIFY [Suspect]
     Indication: SCHIZOPHRENIA
     Dosage: 12MG 11JAN12-19JAN12(9DYS) 18MG 20JAN12-23JAN12(4DYS) 24MG 24JAN12-ONG
     Route: 048
     Dates: start: 20120111

REACTIONS (2)
  - ANXIETY [None]
  - PERSECUTORY DELUSION [None]
